FAERS Safety Report 15073329 (Version 2)
Quarter: 2018Q3

REPORT INFORMATION
  Report Type: Spontaneous
  Country: ES (occurrence: ES)
  Receive Date: 20180627
  Receipt Date: 20180702
  Transmission Date: 20181010
  Serious: Yes (Other)
  Sender: FDA-Public Use
  Company Number: PHHY2017ES203930

PATIENT
  Age: 75 Year
  Sex: Male
  Weight: 64 kg

DRUGS (9)
  1. FLUIDASA (MEPYRAMINE THEOPHYLLINE ACETATE) [Suspect]
     Active Substance: MEPIFYLLINE
     Indication: BRONCHITIS
     Dosage: 5 MG, Q8H
     Route: 048
     Dates: start: 20171212
  2. PULMICORT TURBUHALER [Suspect]
     Active Substance: BUDESONIDE
     Indication: BRONCHITIS
     Dosage: 1 OT, Q12H
     Route: 055
     Dates: start: 20171212
  3. REPAGLINIDE. [Concomitant]
     Active Substance: REPAGLINIDE
     Indication: TYPE 2 DIABETES MELLITUS
     Dosage: 3 OT, QD (DOSE: 1?2?2)
     Route: 048
  4. PARACETAMOL [Suspect]
     Active Substance: ACETAMINOPHEN
     Indication: BRONCHITIS
     Dosage: 1 OT, Q8H
     Route: 048
     Dates: start: 20171212
  5. LANTUS [Suspect]
     Active Substance: INSULIN GLARGINE
     Indication: TYPE 2 DIABETES MELLITUS
     Dosage: 20 IU, QD
     Route: 058
  6. LANTUS [Suspect]
     Active Substance: INSULIN GLARGINE
     Dosage: 22 IU, QD
     Route: 058
  7. PULMICORT TURBUHALER [Suspect]
     Active Substance: BUDESONIDE
     Indication: ASTHMA
  8. LEVOFLOXACIN. [Suspect]
     Active Substance: LEVOFLOXACIN
     Indication: BRONCHITIS
     Dosage: 1 OT, QD
     Route: 048
     Dates: start: 20171212
  9. GALVUS [Concomitant]
     Active Substance: VILDAGLIPTIN
     Indication: TYPE 2 DIABETES MELLITUS
     Dosage: 1 OT, QD (DOSE: 1?0?0)
     Route: 048

REACTIONS (12)
  - Hypoglycaemia [Recovered/Resolved]
  - Secretion discharge [Not Recovered/Not Resolved]
  - Nasopharyngitis [Not Recovered/Not Resolved]
  - Dyspnoea [Not Recovered/Not Resolved]
  - Diabetes mellitus inadequate control [Not Recovered/Not Resolved]
  - Intentional product misuse [Unknown]
  - Hyperglycaemia [Recovered/Resolved]
  - Drug ineffective [Unknown]
  - Weight increased [Unknown]
  - Bronchitis [Not Recovered/Not Resolved]
  - Cough [Not Recovered/Not Resolved]
  - Dizziness [Recovered/Resolved]

NARRATIVE: CASE EVENT DATE: 20171212
